FAERS Safety Report 10722734 (Version 2)
Quarter: 2015Q2

REPORT INFORMATION
  Report Type: Spontaneous
  Country: US (occurrence: US)
  Receive Date: 20150120
  Receipt Date: 20150511
  Transmission Date: 20150821
  Serious: Yes (Hospitalization, Other)
  Sender: FDA-Public Use
  Company Number: US-GLAXOSMITHKLINE-US2015GSK005819

PATIENT
  Age: 18 Year
  Sex: Male
  Weight: 78.9 kg

DRUGS (1)
  1. MEKINIST [Suspect]
     Active Substance: TRAMETINIB DIMETHYL SULFOXIDE
     Indication: RENAL CANCER
     Dosage: 2 MG, QD
     Route: 048
     Dates: start: 20141103, end: 20150209

REACTIONS (3)
  - Hospitalisation [Unknown]
  - Ejection fraction decreased [Recovering/Resolving]
  - Cardiac disorder [Recovering/Resolving]

NARRATIVE: CASE EVENT DATE: 20150114
